FAERS Safety Report 10227047 (Version 1)
Quarter: 2014Q2

REPORT INFORMATION
  Report Type: Spontaneous
  Country: US (occurrence: None)
  Receive Date: 20140606
  Receipt Date: 20140606
  Transmission Date: 20141212
  Serious: Yes (Hospitalization)
  Sender: FDA-Public Use
  Company Number: UNT-2014-001278

PATIENT
  Sex: Male

DRUGS (6)
  1. TYVASO [Suspect]
     Indication: COR PULMONALE CHRONIC
     Route: 055
     Dates: start: 20120503
  2. ACYCLOVIR (ACICLOVIR) (ACICLOVIR) [Concomitant]
  3. PROLIA (DENOSUMAB) [Concomitant]
  4. QVAR [Concomitant]
  5. ACETAZOLAMIDE [Concomitant]
  6. XANAX (ALPRAZOLAM) [Concomitant]

REACTIONS (2)
  - Pneumonia [None]
  - Herpes zoster [None]
